FAERS Safety Report 20315708 (Version 1)
Quarter: 2022Q1

REPORT INFORMATION
  Report Type: Spontaneous
  Country: US (occurrence: None)
  Receive Date: 20220110
  Receipt Date: 20220110
  Transmission Date: 20220423
  Serious: No
  Sender: FDA-Public Use
  Company Number: US-ROCHE-2801833

PATIENT
  Sex: Female
  Weight: 72.186 kg

DRUGS (3)
  1. RITUXAN [Suspect]
     Active Substance: RITUXIMAB
     Indication: Rheumatoid arthritis
     Dosage: 2 WEEKS APART EVERY 6 MONTHS
     Route: 041
     Dates: start: 201911
  2. RITUXAN [Suspect]
     Active Substance: RITUXIMAB
     Dosage: 2 WEEKS APART EVERY 6 MONTHS
     Route: 041
     Dates: start: 20210202
  3. METHOTREXATE [Concomitant]
     Active Substance: METHOTREXATE
     Route: 048

REACTIONS (1)
  - Eczema [Not Recovered/Not Resolved]
